FAERS Safety Report 6618449-5 (Version None)
Quarter: 2010Q1

REPORT INFORMATION
  Report Type: 
  Country: None (occurrence: None)
  Receive Date: 20100223
  Receipt Date: 20091123
  Transmission Date: 20100710
  Serious: No
  Sender: FDA-Public Use
  Company Number: 8055120

PATIENT
  Sex: Female
  Weight: 46.3 kg

DRUGS (3)
  1. CERTOLIZUMAB PEGOL (UCB, INC) [Suspect]
     Indication: CROHN'S DISEASE
     Dosage: SUBCUTANEOUS
     Route: 058
     Dates: start: 20091001
  2. XIFAXAN [Concomitant]
  3. METRONIDAZOLE [Concomitant]

REACTIONS (1)
  - INJECTION SITE PAIN [None]
